FAERS Safety Report 4511676-2 (Version None)
Quarter: 2004Q4

REPORT INFORMATION
  Report Type: 
  Country: None (occurrence: None)
  Receive Date: 20041129
  Receipt Date: 20041119
  Transmission Date: 20050328
  Serious: Yes (Hospitalization)
  Sender: FDA-Public Use
  Company Number: FR-BRISTOL-MYERS SQUIBB COMPANY-12770517

PATIENT
  Age: 80 Year
  Sex: Male

DRUGS (1)
  1. COAPROVEL TABS 150MG/12.5MG [Suspect]
     Route: 048
     Dates: end: 20030131

REACTIONS (6)
  - DEHYDRATION [None]
  - DIZZINESS [None]
  - FALL [None]
  - HYPONATRAEMIA [None]
  - MALAISE [None]
  - RENAL FAILURE ACUTE [None]
